FAERS Safety Report 6976674-8 (Version None)
Quarter: 2010Q3

REPORT INFORMATION
  Report Type: 
  Country: None (occurrence: None)
  Receive Date: 20100910
  Receipt Date: 20090428
  Transmission Date: 20110219
  Serious: No
  Sender: FDA-Public Use
  Company Number: US-WYE-H09139809

PATIENT
  Sex: Female

DRUGS (4)
  1. PRISTIQ [Suspect]
     Indication: ANXIETY
     Dosage: 1/2 50 MG TABLET DAILY
     Route: 048
     Dates: start: 20090328, end: 20090427
  2. PRISTIQ [Suspect]
     Route: 048
     Dates: start: 20090428
  3. THYROID TAB [Concomitant]
  4. VESICARE [Concomitant]

REACTIONS (1)
  - HEADACHE [None]
